FAERS Safety Report 8570330 (Version 2)
Quarter: 2014Q1

REPORT INFORMATION
  Report Type: Spontaneous
  Country: US (occurrence: None)
  Receive Date: 20120323
  Receipt Date: 20130305
  Transmission Date: 20141002
  Serious: Yes (Hospitalization)
  Sender: FDA-Public Use
  Company Number: 163-21880-11112481

PATIENT
  Age: 87 Year
  Sex: Male

DRUGS (6)
  1. REVLIMID (LENALIDOMIDE) (CAPSULES) [Suspect]
     Indication: PLASMA CELL MYELOMA
     Dosage: ALTERNATING 20MG WITH 10MG
     Route: 048
     Dates: start: 200812
  2. ATENOLOL [Concomitant]
  3. NEUPOGEN (FILGRASTIM) [Concomitant]
  4. ISOSORBIDE MONONITRATE [Concomitant]
  5. ZOCOR (SIMVASTATIN) [Concomitant]
  6. COUMADIN (WARFARIN SODIUM) [Concomitant]

REACTIONS (1)
  - Back pain [None]
